FAERS Safety Report 10605662 (Version 1)
Quarter: 2014Q4

REPORT INFORMATION
  Report Type: Spontaneous
  Country: FR (occurrence: FR)
  Receive Date: 20141125
  Receipt Date: 20141125
  Transmission Date: 20150529
  Serious: Yes (Hospitalization)
  Sender: FDA-Public Use
  Company Number: FR-009507513-1411FRA010410

PATIENT
  Age: 89 Year
  Sex: Female

DRUGS (2)
  1. LOXEN [Suspect]
     Active Substance: NICARDIPINE HYDROCHLORIDE
     Dosage: 1 DF, QD
     Route: 048
     Dates: end: 20140628
  2. COZAAR [Suspect]
     Active Substance: LOSARTAN POTASSIUM
     Dosage: 1 DF, QD
     Route: 048
     Dates: end: 20140628

REACTIONS (2)
  - Fall [Recovered/Resolved]
  - Orthostatic hypotension [Recovered/Resolved]

NARRATIVE: CASE EVENT DATE: 201406
